FAERS Safety Report 9653400 (Version 1)
Quarter: 2013Q4

REPORT INFORMATION
  Report Type: Spontaneous
  Country: US (occurrence: None)
  Receive Date: 20131028
  Receipt Date: 20131028
  Transmission Date: 20140711
  Serious: Yes (Disabling)
  Sender: FDA-Public Use
  Company Number: None

PATIENT
  Age: 84 Year
  Sex: Female
  Weight: 54.43 kg

DRUGS (1)
  1. LEVOFLOXICIN [Suspect]
     Indication: DIVERTICULITIS
     Dates: start: 20121026, end: 20130809

REACTIONS (3)
  - Hallucination [None]
  - Paranoia [None]
  - Tendonitis [None]
